FAERS Safety Report 5236282-6 (Version None)
Quarter: 2007Q1

REPORT INFORMATION
  Report Type: 
  Country: None (occurrence: None)
  Receive Date: 20070212
  Receipt Date: 20070201
  Transmission Date: 20070707
  Serious: Yes (Hospitalization)
  Sender: FDA-Public Use
  Company Number: CA-BOEHRINGER INGELHEIM GMBH, GERMANY-2007-CN-00069CN

PATIENT
  Sex: Female

DRUGS (9)
  1. MICARDIS [Suspect]
     Indication: HYPERTENSION
     Dates: start: 20061113
  2. EFFEXOR [Concomitant]
  3. ALTACE [Concomitant]
  4. OXYCONTIN [Concomitant]
  5. NAPROXEN [Concomitant]
  6. LIPITOR [Concomitant]
  7. GABAPENTIN [Concomitant]
  8. OXYCODONE HYDROCHLORIDE AND ACETAMINOPHEN [Concomitant]
  9. TYLENOL W/ CODEINE [Concomitant]

REACTIONS (2)
  - NEOPLASM MALIGNANT [None]
  - THROAT CANCER [None]
